FAERS Safety Report 4315460-4 (Version None)
Quarter: 2004Q1

REPORT INFORMATION
  Report Type: 
  Country: None (occurrence: None)
  Receive Date: 20040310
  Receipt Date: 20040310
  Transmission Date: 20041129
  Serious: Yes (Hospitalization)
  Sender: FDA-Public Use
  Company Number: None

PATIENT
  Age: 45 Year
  Sex: Female

DRUGS (3)
  1. ENBREL [Suspect]
     Indication: RHEUMATOID ARTHRITIS
     Dosage: 2 SHOTS A WEEK SQ
     Route: 058
     Dates: start: 19990101
  2. PREDNISONE [Concomitant]
  3. FOSAMAX [Concomitant]

REACTIONS (3)
  - LYMPHOCYTE MORPHOLOGY ABNORMAL [None]
  - MUSCLE DISORDER [None]
  - STAPHYLOCOCCAL INFECTION [None]
